FAERS Safety Report 5271213-4 (Version None)
Quarter: 2007Q1

REPORT INFORMATION
  Report Type: 
  Country: None (occurrence: None)
  Receive Date: 20070315
  Receipt Date: 20070227
  Transmission Date: 20070707
  Serious: Yes (Hospitalization)
  Sender: FDA-Public Use
  Company Number: 237674

PATIENT
  Age: 58 Year
  Sex: Male
  Weight: 115 kg

DRUGS (10)
  1. AVASTIN [Suspect]
     Indication: COLON CANCER
     Dosage: 862 MG, Q3W, INTRAVENOUS
     Route: 042
     Dates: start: 20070214
  2. CAPECITABINE(CAPECITABINE) [Suspect]
     Indication: COLON CANCER
     Dosage: 4300 MG, D1 4/Q3W, ORAL
     Route: 048
     Dates: start: 20070214, end: 20070222
  3. OXALIPLATIN [Suspect]
     Indication: COLON CANCER
     Dosage: 288.6 MG, Q3W, INTRAVENOUS
     Route: 042
     Dates: start: 20070214
  4. ACETAMINOPHEN [Concomitant]
  5. RANITIDINE [Concomitant]
  6. TRAMADOL HCL [Concomitant]
  7. SERETIDE (FLUTICASONE PROPIONATE, SALMETEROL XINAFOATE) [Concomitant]
  8. SALBUTAMOL (ALBUTEROL/ALBUTEROL SULFATE) [Concomitant]
  9. LACTULOSE [Concomitant]
  10. FERROUS SULFATE TAB [Concomitant]

REACTIONS (7)
  - ABDOMINAL PAIN [None]
  - BLOOD CALCIUM INCREASED [None]
  - BLOOD PRESSURE SYSTOLIC INCREASED [None]
  - BLOOD SODIUM DECREASED [None]
  - COMPUTERISED TOMOGRAM ABDOMEN ABNORMAL [None]
  - HAEMOGLOBIN DECREASED [None]
  - INFECTION [None]
